FAERS Safety Report 6284119-9 (Version None)
Quarter: 2009Q3

REPORT INFORMATION
  Report Type: 
  Country: None (occurrence: None)
  Receive Date: 20090722
  Receipt Date: 20090714
  Transmission Date: 20100115
  Serious: Yes (Life-Threatening)
  Sender: FDA-Public Use
  Company Number: 2009EK003615

PATIENT
  Age: 64 Year
  Sex: Male
  Weight: 95.2 kg

DRUGS (6)
  1. CARDENE [Suspect]
     Indication: PROCEDURAL HYPERTENSION
     Dosage: 20 MG/200ML; XI; IV
     Route: 040
     Dates: start: 20090713, end: 20090713
  2. INSULIN [Concomitant]
  3. NEO-SYNEPHRINOL [Concomitant]
  4. EPINEPHRINE [Concomitant]
  5. LACTATE RINGERS [Concomitant]
  6. FRESH FROZEN PLASMA [Concomitant]

REACTIONS (2)
  - ANAPHYLACTIC SHOCK [None]
  - URTICARIA [None]
